FAERS Safety Report 6161222-5 (Version None)
Quarter: 2009Q2

REPORT INFORMATION
  Report Type: 
  Country: None (occurrence: None)
  Receive Date: 20090421
  Receipt Date: 20090410
  Transmission Date: 20091009
  Serious: Yes (Death)
  Sender: FDA-Public Use
  Company Number: US-WYE-H08944509

PATIENT
  Age: 17 Year
  Sex: Female

DRUGS (4)
  1. PHENERGAN [Suspect]
     Dosage: UNKNOWN
  2. TEMAZEPAM [Suspect]
     Dosage: UNKNOWN
  3. MORPHINE [Suspect]
     Dosage: UNKNOWN
  4. DIAZEPAM [Suspect]
     Dosage: UNKNOWN

REACTIONS (1)
  - DRUG TOXICITY [None]
